FAERS Safety Report 9217126 (Version 1)
Quarter: 2013Q2

REPORT INFORMATION
  Report Type: Spontaneous
  Country: JP (occurrence: JP)
  Receive Date: 20130408
  Receipt Date: 20130408
  Transmission Date: 20140414
  Serious: Yes (Hospitalization)
  Sender: FDA-Public Use
  Company Number: JP-ASTRAZENECA-2013SE14872

PATIENT
  Age: 29 Year
  Sex: Male
  Weight: 68 kg

DRUGS (7)
  1. NEXIUM [Suspect]
     Indication: GASTROOESOPHAGEAL REFLUX DISEASE
     Route: 048
     Dates: start: 20130121, end: 20130218
  2. CRAVIT [Concomitant]
     Indication: APPENDICITIS
     Route: 048
     Dates: start: 20130121, end: 20130124
  3. REBAMIPIDE [Concomitant]
     Indication: GASTROOESOPHAGEAL REFLUX DISEASE
     Dosage: DOSE UNKNOWN
     Route: 065
     Dates: start: 20130121, end: 20130218
  4. TIEKAPTO [Concomitant]
     Indication: NASOPHARYNGITIS
     Dosage: DOSE UNKNOWN
     Route: 065
     Dates: start: 20130216, end: 20130217
  5. SORELMON [Concomitant]
     Indication: NASOPHARYNGITIS
     Dosage: DOSE UNKNOWN
     Route: 065
     Dates: start: 20130216, end: 20130217
  6. ELPINAN [Concomitant]
     Indication: NASOPHARYNGITIS
     Dosage: DOSE UNKNOWN
     Route: 065
     Dates: start: 20130216, end: 20130217
  7. BETASELEMIN [Concomitant]
     Indication: NASOPHARYNGITIS
     Dosage: DOSE UNKNOWN
     Route: 065
     Dates: start: 20130216, end: 20130217

REACTIONS (1)
  - Drug-induced liver injury [Recovering/Resolving]
